FAERS Safety Report 6248410-4 (Version None)
Quarter: 2009Q2

REPORT INFORMATION
  Report Type: 
  Country: None (occurrence: None)
  Receive Date: 20090624
  Receipt Date: 20090610
  Transmission Date: 20091009
  Serious: Yes (Hospitalization)
  Sender: FDA-Public Use
  Company Number: 2009-198664-NL

PATIENT
  Sex: Female

DRUGS (2)
  1. IMPLANON [Suspect]
     Indication: CONTRACEPTION
     Dosage: SUBDERMAL
     Route: 059
     Dates: start: 20081209
  2. AMOXICILLIN [Concomitant]

REACTIONS (4)
  - ARTHRALGIA [None]
  - BLOOD PRESSURE INCREASED [None]
  - GENERALISED OEDEMA [None]
  - SKIN EXFOLIATION [None]
